FAERS Safety Report 23616837 (Version 1)
Quarter: 2024Q1

REPORT INFORMATION
  Report Type: Spontaneous
  Country: US (occurrence: US)
  Receive Date: 20240311
  Receipt Date: 20240311
  Transmission Date: 20240410
  Serious: Yes (Hospitalization)
  Sender: FDA-Public Use
  Company Number: US-GENEYORK-2024PPLIT00018

PATIENT
  Age: 72 Year
  Sex: Female

DRUGS (4)
  1. PREDNISONE [Suspect]
     Active Substance: PREDNISONE
     Indication: Giant cell arteritis
     Dosage: HIGH DOSE
     Route: 065
  2. BENZODIAZEPINE [Concomitant]
     Active Substance: BENZODIAZEPINE
     Indication: Giant cell arteritis
     Route: 065
  3. MEMANTINE [Concomitant]
     Active Substance: MEMANTINE
     Indication: Giant cell arteritis
     Route: 065
  4. TOCILIZUMAB [Concomitant]
     Active Substance: TOCILIZUMAB
     Indication: Giant cell arteritis
     Route: 065

REACTIONS (1)
  - Catatonia [Recovered/Resolved]
